FAERS Safety Report 21778014 (Version 1)
Quarter: 2022Q4

REPORT INFORMATION
  Report Type: Other
  Country: GB (occurrence: GB)
  Receive Date: 20221226
  Receipt Date: 20221226
  Transmission Date: 20230113
  Serious: Yes (Hospitalization, Disabling)
  Sender: FDA-Public Use
  Company Number: None

PATIENT

DRUGS (29)
  1. GABAPENTIN [Suspect]
     Active Substance: GABAPENTIN
     Indication: Product used for unknown indication
     Dosage: 100 MILLIGRAM (GABAPENTIN 100MG OM, LUNCHTIME + TEATIME)
     Route: 065
  2. OXYBUTYNIN [Concomitant]
     Active Substance: OXYBUTYNIN
     Indication: Product used for unknown indication
     Dosage: 5 MILLIGRAM (OXBUTYNIN 5MG OM + TEATIME)
     Route: 065
  3. DILTIAZEM [Concomitant]
     Active Substance: DILTIAZEM
     Indication: Product used for unknown indication
     Dosage: 120 MILLIGRAM (ADIZEM XL) 120MG OM)
     Route: 065
  4. ASPIRIN [Concomitant]
     Active Substance: ASPIRIN
     Indication: Product used for unknown indication
     Dosage: 75 MILLIGRAM (ASPIRIN DISPERSIBLE 75MG OM)
     Route: 065
  5. ATORVASTATIN [Concomitant]
     Active Substance: ATORVASTATIN
     Indication: Product used for unknown indication
     Dosage: 20 MILLIGRAM (ATORVASTATIN 20MG ON)
     Route: 065
  6. CARBOCYSTEINE [Concomitant]
     Active Substance: CARBOCYSTEINE
     Indication: Product used for unknown indication
     Dosage: 750 MILLIGRAM (CARBOCISTEINE 750MG OM + TEATIME)
     Route: 065
  7. CETIRIZINE [Concomitant]
     Active Substance: CETIRIZINE HYDROCHLORIDE
     Indication: Product used for unknown indication
     Dosage: 10 MILLIGRAM (CETIRIZINE 10MG OM)
     Route: 065
  8. ISOSORBIDE MONONITRATE [Concomitant]
     Active Substance: ISOSORBIDE MONONITRATE
     Indication: Product used for unknown indication
     Dosage: 60 MILLIGRAM (60MG OM)
     Route: 065
  9. FERROUS SULFATE [Concomitant]
     Active Substance: FERROUS SULFATE
     Indication: Product used for unknown indication
     Dosage: 200 MILLIGRAM (200MG OM + TEATIME)
     Route: 065
  10. METFORMIN [Concomitant]
     Active Substance: METFORMIN HYDROCHLORIDE
     Indication: Product used for unknown indication
     Dosage: 500 MILLIGRAM (500MG OM)
     Route: 065
  11. OMEPRAZOLE [Concomitant]
     Active Substance: OMEPRAZOLE
     Indication: Product used for unknown indication
     Dosage: 20 MILLIGRAM (20MG OM)
     Route: 065
  12. SERTRALINE [Concomitant]
     Active Substance: SERTRALINE HYDROCHLORIDE
     Indication: Product used for unknown indication
     Dosage: 100 MILLIGRAM (100MG OM)
     Route: 065
  13. ALBUTEROL [Concomitant]
     Active Substance: ALBUTEROL
     Indication: Product used for unknown indication
     Dosage: 100 MICROGRAM, PRN (SALBUTAMOL 100MICROGRAM/DOSE INHALER ONE TO TWO PUFFS PRN )
     Route: 065
  14. ALBUTEROL [Concomitant]
     Active Substance: ALBUTEROL
     Dosage: 2.5 MILLIGRAM (SALBUTAMOL 2.5MG NEBS QDS - USES PRN BUT NOT VERY OFTEN (BEEN MOVED TO DSC ON SCR)
     Route: 065
  15. ALBUTEROL [Concomitant]
     Active Substance: ALBUTEROL
     Dosage: 2.5 MILLIGRAM, PRN (SALBUTAMOL 2.5MG NEBS QDS - STILL USES PRN BUT NOT OFTEN )
     Route: 065
     Dates: start: 20221028
  16. TRELEGY ELLIPTA [Concomitant]
     Active Substance: FLUTICASONE FUROATE\UMECLIDINIUM BROMIDE\VILANTEROL TRIFENATATE
     Indication: Product used for unknown indication
     Dosage: UNK (TRELEGY ELLIPTA 92/55/22MICROGRAM/DOSE INHALER ONE PUFF OD )
     Route: 065
  17. NITROGLYCERIN [Concomitant]
     Active Substance: NITROGLYCERIN
     Indication: Product used for unknown indication
     Dosage: 400 MICROGRAM, PRN (GLYCERYL TRINITRATE SPRAY 400MICROGRAM/DOSE ONE TO TWO PUFFS PRN LAST ISSUED 5/2
     Route: 065
  18. HYDROXOCOBALAMIN [Concomitant]
     Active Substance: HYDROXOCOBALAMIN
     Indication: Product used for unknown indication
     Dosage: 1 MILLIGRAM PER MILLILITRE (HYDROXOCOBALAMIN 1MG/ML INJECTION EVERY THREE MONTHS LAST ISSUED X1 - 14
     Route: 065
  19. ACETAMINOPHEN\CODEINE PHOSPHATE [Concomitant]
     Active Substance: ACETAMINOPHEN\CODEINE PHOSPHATE
     Indication: Product used for unknown indication
     Dosage: UNK, PRN (ZAPAIN 30MG/500MG ONE TO TWO PRN - USES PRN BUT NOT VERY OFTEN (BEEN MOVED TO DSC ON SCR)
     Route: 065
  20. ACETAMINOPHEN\CODEINE PHOSPHATE [Concomitant]
     Active Substance: ACETAMINOPHEN\CODEINE PHOSPHATE
     Dosage: UNK, PRN (ZAPAIN 30MG/500MG ONE TO TWO PRN - STILL USES PRN BUT NOT OFTEN)
     Route: 065
     Dates: start: 20221028
  21. AMOXICILLIN [Concomitant]
     Active Substance: AMOXICILLIN
     Indication: Product used for unknown indication
     Dosage: 500 MILLIGRAM (AMOXICILLIN CAPSULES 500MG TDS 5 DAYS)
     Route: 065
  22. AMOXICILLIN [Concomitant]
     Active Substance: AMOXICILLIN
     Dosage: 500 MILLIGRAM (500MG TDS X15  )
     Route: 065
     Dates: start: 20221028
  23. PREDNISOLONE [Concomitant]
     Active Substance: PREDNISOLONE
     Indication: Product used for unknown indication
     Dosage: 30 MILLIGRAM (PREDNISOLONE TABLETS 30MG OD 5 DAYS)
     Route: 065
  24. PREDNISOLONE [Concomitant]
     Active Substance: PREDNISOLONE
     Dosage: 30 MILLIGRAM (PREDNISOLONE 30MG OD X30 )
     Route: 065
     Dates: start: 20221028
  25. CHOLECALCIFEROL [Concomitant]
     Active Substance: CHOLECALCIFEROL
     Indication: Product used for unknown indication
     Dosage: 40000 UNITS (COLECALCIFEROL 40 000UNITS ONCE WEEKLY FOR 7 WEEKS)
     Route: 065
     Dates: start: 20220923
  26. CHOLECALCIFEROL [Concomitant]
     Active Substance: CHOLECALCIFEROL
     Dosage: 20000 UNITS (20,000 UNITS WEEKLY ONLY AND STILL HAS A COUPLE OF DOSES LEFT)
     Route: 065
  27. OXYCODONE [Concomitant]
     Active Substance: OXYCODONE
     Indication: Product used for unknown indication
     Dosage: 20 MILLIGRAM (OXYCODONE MR 20MG BD - NO LONGER ON THIS, STOPPED A WHILE AGO)
     Route: 065
     Dates: start: 20221028
  28. CHOLECALCIFEROL [Concomitant]
     Active Substance: CHOLECALCIFEROL
     Indication: Product used for unknown indication
     Dosage: UNK ( LOW DOSE )
     Route: 065
  29. MOVICOL [Concomitant]
     Active Substance: POLYETHYLENE GLYCOL 3350\POTASSIUM CHLORIDE\SODIUM BICARBONATE\SODIUM CHLORIDE
     Indication: Product used for unknown indication
     Dosage: UNK (MOVICOL ONE BD - NOT USED FOR A LONG TIME (NO SUPPLIES AT HOME))
     Route: 065
     Dates: start: 20221028

REACTIONS (1)
  - Confusional state [Recovered/Resolved]
